FAERS Safety Report 10023835 (Version 2)
Quarter: 2014Q1

REPORT INFORMATION
  Report Type: Spontaneous
  Country: US (occurrence: US)
  Receive Date: 20140320
  Receipt Date: 20140320
  Transmission Date: 20141002
  Serious: Yes (Disabling)
  Sender: FDA-Public Use
  Company Number: US-GE HEALTHCARE MEDICAL DIAGNOSTICS-OSCN-PR-0911S-0484

PATIENT
  Age: 49 Year
  Sex: Male

DRUGS (6)
  1. OMNISCAN [Suspect]
     Indication: PANCREATITIS
     Dosage: UNSPECIFIED
     Route: 042
     Dates: start: 20050815, end: 20050815
  2. OMNISCAN [Suspect]
     Indication: THROMBOSIS
     Route: 042
     Dates: start: 20050825, end: 20050825
  3. OMNISCAN [Suspect]
     Indication: PYREXIA
     Route: 042
     Dates: start: 20050922, end: 20050922
  4. OMNISCAN [Suspect]
     Indication: PSEUDOCYST
     Route: 042
     Dates: start: 20050929, end: 20050929
  5. GADOLINIUM (UNSPECIFIED) [Suspect]
     Indication: PANCREATITIS
     Dosage: UNSPECIFIED
     Route: 042
     Dates: start: 20060301, end: 20060301
  6. GADOLINIUM (UNSPECIFIED) [Suspect]
     Route: 042
     Dates: start: 20060401, end: 20060401

REACTIONS (1)
  - Nephrogenic systemic fibrosis [Not Recovered/Not Resolved]
